FAERS Safety Report 5642768-2 (Version None)
Quarter: 2008Q1

REPORT INFORMATION
  Report Type: 
  Country: None (occurrence: None)
  Receive Date: 20080227
  Receipt Date: 20080227
  Transmission Date: 20080703
  Serious: Yes (Life-Threatening)
  Sender: FDA-Public Use
  Company Number: None

PATIENT
  Age: 39 Year
  Sex: Male
  Weight: 90 kg

DRUGS (1)
  1. VARENICLINE [Suspect]
     Dosage: 1 MG BID
     Dates: start: 20071102, end: 20080114

REACTIONS (4)
  - ANXIETY DISORDER [None]
  - DEPRESSION [None]
  - NIGHTMARE [None]
  - SUICIDAL IDEATION [None]
